FAERS Safety Report 23462357 (Version 2)
Quarter: 2024Q1

REPORT INFORMATION
  Report Type: Spontaneous
  Country: US (occurrence: US)
  Receive Date: 20240131
  Receipt Date: 20240308
  Transmission Date: 20240410
  Serious: Yes (Life-Threatening, Hospitalization, Other)
  Sender: FDA-Public Use
  Company Number: US-BRISTOL-MYERS SQUIBB COMPANY-2024-013073

PATIENT
  Age: 91 Year
  Sex: Female
  Weight: 54.9 kg

DRUGS (20)
  1. ELIQUIS [Suspect]
     Active Substance: APIXABAN
     Indication: Product used for unknown indication
  2. TYVASO [Suspect]
     Active Substance: TREPROSTINIL
     Indication: Pulmonary arterial hypertension
     Dosage: INHALATION
     Route: 050
     Dates: start: 20240101, end: 20240101
  3. TYVASO [Suspect]
     Active Substance: TREPROSTINIL
     Dosage: 5 BREATHS, INHALATION
     Route: 050
     Dates: start: 202402, end: 202402
  4. TYVASO [Suspect]
     Active Substance: TREPROSTINIL
     Dosage: 4 BREATHS, INHALATION
     Route: 050
     Dates: start: 20240126, end: 202402
  5. TYVASO [Suspect]
     Active Substance: TREPROSTINIL
     Dosage: INHALATION
     Route: 050
     Dates: start: 20240101, end: 20240101
  6. TYVASO [Suspect]
     Active Substance: TREPROSTINIL
     Dosage: 4 BREATHS, INHALATION
     Route: 050
     Dates: start: 202402
  7. TYVASO [Suspect]
     Active Substance: TREPROSTINIL
     Dosage: INHALATION
     Dates: start: 20240108
  8. ZOLOFT [Suspect]
     Active Substance: SERTRALINE HYDROCHLORIDE
     Indication: Depression
     Dates: start: 20240102
  9. ZOLOFT [Suspect]
     Active Substance: SERTRALINE HYDROCHLORIDE
     Dates: start: 20240110
  10. COENZYME Q10 [Concomitant]
     Active Substance: DIETARY SUPPLEMENT\UBIDECARENONE
     Indication: Product used for unknown indication
  11. POTASSIUM CHLORIDE [Concomitant]
     Active Substance: POTASSIUM CHLORIDE
     Indication: Product used for unknown indication
  12. SILDENAFIL CITRATE [Concomitant]
     Active Substance: SILDENAFIL CITRATE
     Indication: Product used for unknown indication
  13. METOPROLOL SUCCINATE [Concomitant]
     Active Substance: METOPROLOL SUCCINATE
     Indication: Product used for unknown indication
  14. VITAMIN D3 [Concomitant]
     Active Substance: CHOLECALCIFEROL
     Indication: Product used for unknown indication
  15. OXYGEN [Concomitant]
     Active Substance: OXYGEN
     Indication: Product used for unknown indication
  16. ACETAMINOPHEN [Concomitant]
     Active Substance: ACETAMINOPHEN
     Indication: Product used for unknown indication
  17. OMEPRAZOLE [Concomitant]
     Active Substance: OMEPRAZOLE
     Indication: Product used for unknown indication
  18. FERROUS SULFATE [Concomitant]
     Active Substance: FERROUS SULFATE
     Indication: Product used for unknown indication
  19. TORSEMIDE [Concomitant]
     Active Substance: TORSEMIDE
     Indication: Product used for unknown indication
  20. ESTRADIOL [Concomitant]
     Active Substance: ESTRADIOL
     Indication: Product used for unknown indication

REACTIONS (16)
  - Dizziness [Unknown]
  - Asthenia [Not Recovered/Not Resolved]
  - Fatigue [Unknown]
  - Throat irritation [Recovered/Resolved]
  - Depression [Unknown]
  - Headache [Unknown]
  - Unresponsive to stimuli [Unknown]
  - Tricuspid valve incompetence [Unknown]
  - Fluid retention [Unknown]
  - Atrial fibrillation [Unknown]
  - Blood pressure decreased [Recovering/Resolving]
  - Cough [Unknown]
  - Nocturnal dyspnoea [Unknown]
  - Weight increased [Unknown]
  - Eye movement disorder [Unknown]
  - Head titubation [Unknown]

NARRATIVE: CASE EVENT DATE: 20240101
